FAERS Safety Report 12798166 (Version 2)
Quarter: 2016Q4

REPORT INFORMATION
  Report Type: Spontaneous
  Country: US (occurrence: US)
  Receive Date: 20160930
  Receipt Date: 20161010
  Transmission Date: 20170207
  Serious: Yes (Hospitalization)
  Sender: FDA-Public Use
  Company Number: US-BAUSCH-BL-2016-024012

PATIENT
  Age: 73 Year
  Sex: Male

DRUGS (1)
  1. UCERIS [Suspect]
     Active Substance: BUDESONIDE
     Indication: COLITIS ULCERATIVE
     Route: 065
     Dates: start: 201604

REACTIONS (1)
  - Hip arthroplasty [Recovering/Resolving]

NARRATIVE: CASE EVENT DATE: 20160808
